FAERS Safety Report 9128188 (Version 1)
Quarter: 2013Q1

REPORT INFORMATION
  Report Type: Spontaneous
  Country: US (occurrence: US)
  Receive Date: 20130228
  Receipt Date: 20130228
  Transmission Date: 20140127
  Serious: No
  Sender: FDA-Public Use
  Company Number: US-ASTRAZENECA-2011SE15007

PATIENT
  Age: 81 Year
  Sex: Female

DRUGS (9)
  1. NEXIUM [Suspect]
     Indication: DYSPEPSIA
     Route: 048
  2. LISINOPRIL [Suspect]
     Route: 048
  3. ATENOLOL [Concomitant]
  4. ZOLOFT [Concomitant]
  5. VICODIN [Concomitant]
  6. CELEBREX [Concomitant]
  7. COUMADIN [Concomitant]
  8. NORVASC [Concomitant]
  9. NEUROTIN [Concomitant]

REACTIONS (4)
  - Cough [Unknown]
  - Dyspepsia [Unknown]
  - Malaise [Unknown]
  - Drug dose omission [Unknown]
